FAERS Safety Report 19017429 (Version 1)
Quarter: 2021Q1

REPORT INFORMATION
  Report Type: Spontaneous
  Country: US (occurrence: US)
  Receive Date: 20210316
  Receipt Date: 20210316
  Transmission Date: 20210420
  Serious: Yes (Other)
  Sender: FDA-Public Use
  Company Number: None

PATIENT
  Sex: Female

DRUGS (2)
  1. GENERIC LEVETIRACETAM [Suspect]
     Active Substance: LEVETIRACETAM
     Indication: PARTIAL SEIZURES
  2. BRAND KEPPRA XR [Concomitant]

REACTIONS (2)
  - Product substitution issue [None]
  - Seizure [None]
